FAERS Safety Report 5243088-0 (Version None)
Quarter: 2007Q1

REPORT INFORMATION
  Report Type: 
  Country: None (occurrence: None)
  Receive Date: 20070221
  Receipt Date: 20070214
  Transmission Date: 20070707
  Serious: Yes (Other)
  Sender: FDA-Public Use
  Company Number: US-ROXANE LABORATORIES, INC-2007-BP-02296RO

PATIENT
  Age: 8 Year
  Sex: Female

DRUGS (1)
  1. METHOTREXATE [Suspect]
     Indication: ACUTE LYMPHOCYTIC LEUKAEMIA
     Dosage: 5 GM/M2

REACTIONS (6)
  - ABDOMINAL PAIN [None]
  - ABDOMINAL RIGIDITY [None]
  - ABDOMINAL TENDERNESS [None]
  - BOWEL SOUNDS ABNORMAL [None]
  - INTUSSUSCEPTION [None]
  - VOMITING [None]
